FAERS Safety Report 8432305-1 (Version None)
Quarter: 2012Q2

REPORT INFORMATION
  Report Type: 
  Country: None (occurrence: None)
  Receive Date: 20120613
  Receipt Date: 20120608
  Transmission Date: 20120825
  Serious: Yes (Hospitalization)
  Sender: FDA-Public Use
  Company Number: PHEH2012US011690

PATIENT
  Sex: Male

DRUGS (1)
  1. ZOMETA [Suspect]
     Route: 042
     Dates: start: 20120601

REACTIONS (6)
  - VOMITING [None]
  - LOSS OF CONSCIOUSNESS [None]
  - ARRHYTHMIA [None]
  - CHILLS [None]
  - NAUSEA [None]
  - PYREXIA [None]
